FAERS Safety Report 4359757-0 (Version None)
Quarter: 2004Q2

REPORT INFORMATION
  Report Type: 
  Country: None (occurrence: None)
  Receive Date: 20040512
  Receipt Date: 20040507
  Transmission Date: 20050107
  Serious: Yes (Life-Threatening, Hospitalization)
  Sender: FDA-Public Use
  Company Number: 2004PK00801

PATIENT
  Age: 69 Year
  Sex: Female
  Weight: 66 kg

DRUGS (3)
  1. NOLVADEX [Suspect]
     Indication: BREAST CANCER
     Dosage: 20 MG DAILY PO
     Route: 048
     Dates: start: 20020118, end: 20030214
  2. BROMAZEPAM [Concomitant]
  3. TRAMAL [Concomitant]

REACTIONS (8)
  - ANAEMIA MEGALOBLASTIC [None]
  - ATELECTASIS [None]
  - CHEST PAIN [None]
  - CIRCULATORY COLLAPSE [None]
  - DEEP VEIN THROMBOSIS [None]
  - GENERAL PHYSICAL HEALTH DETERIORATION [None]
  - PAIN IN EXTREMITY [None]
  - PULMONARY EMBOLISM [None]
